FAERS Safety Report 4293184-X (Version None)
Quarter: 2004Q1

REPORT INFORMATION
  Report Type: 
  Country: None (occurrence: None)
  Receive Date: 20040210
  Receipt Date: 20040126
  Transmission Date: 20041129
  Serious: Yes (Hospitalization)
  Sender: FDA-Public Use
  Company Number: 2004005320

PATIENT
  Age: 50 Year
  Sex: Male
  Weight: 90.7194 kg

DRUGS (2)
  1. ROGAINE [Suspect]
     Indication: ALOPECIA
     Dosage: 1ML 3X TOTAL, TOPICAL
     Route: 061
     Dates: start: 20031125, end: 20031126
  2. LOSARTAN POTASSIUM (LOSARTAN POTASSIUM) [Concomitant]

REACTIONS (2)
  - ARTERIOVENOUS MALFORMATION [None]
  - CEREBRAL HAEMORRHAGE [None]
